FAERS Safety Report 17793762 (Version 1)
Quarter: 2020Q2

REPORT INFORMATION
  Report Type: Spontaneous
  Country: US (occurrence: US)
  Receive Date: 20200515
  Receipt Date: 20200515
  Transmission Date: 20200714
  Serious: Yes (Other)
  Sender: FDA-Public Use
  Company Number: US-UPSHER-SMITH LABORATORIES, LLC-2020USL00257

PATIENT
  Sex: Male

DRUGS (3)
  1. UNSPECIFIED MEDICATIONS [Suspect]
     Active Substance: UNSPECIFIED INGREDIENT
     Indication: RENAL INJURY
  2. UNSPECIFIED MEDICATIONS [Suspect]
     Active Substance: UNSPECIFIED INGREDIENT
     Indication: BLINDNESS
  3. AMIODARONE HYDROCHLORIDE. [Suspect]
     Active Substance: AMIODARONE HYDROCHLORIDE
     Indication: ATRIAL FIBRILLATION
     Dosage: UNK
     Route: 048
     Dates: start: 201602

REACTIONS (17)
  - Cough [Unknown]
  - Renal injury [Unknown]
  - Off label use [Unknown]
  - Macular degeneration [Unknown]
  - Blindness [Unknown]
  - Liver function test abnormal [Unknown]
  - Hypothyroidism [Unknown]
  - Chest pain [Unknown]
  - Asthenia [Unknown]
  - Irritability [Unknown]
  - Weight decreased [Unknown]
  - Insomnia [Unknown]
  - Anaemia [Unknown]
  - Restlessness [Unknown]
  - Pulmonary hypertension [Unknown]
  - Rash [Unknown]
  - Unevaluable event [Unknown]

NARRATIVE: CASE EVENT DATE: 201602
